FAERS Safety Report 5118454-4 (Version None)
Quarter: 2006Q4

REPORT INFORMATION
  Report Type: 
  Country: None (occurrence: None)
  Receive Date: 20061002
  Receipt Date: 20060921
  Transmission Date: 20070319
  Serious: Yes (Hospitalization)
  Sender: FDA-Public Use
  Company Number: DE-JNJFOC-20040401494

PATIENT
  Sex: Male

DRUGS (2)
  1. RISPERDAL CONSTA [Suspect]
     Indication: PSYCHOTIC DISORDER
     Route: 030
  2. RAMIPRIL [Concomitant]

REACTIONS (2)
  - CARDIAC FAILURE [None]
  - INFLAMMATION [None]
